FAERS Safety Report 11995409 (Version 4)
Quarter: 2016Q1

REPORT INFORMATION
  Report Type: Spontaneous
  Country: US (occurrence: US)
  Receive Date: 20160203
  Receipt Date: 20160318
  Transmission Date: 20160526
  Serious: Yes (Other)
  Sender: FDA-Public Use
  Company Number: US-GLAXOSMITHKLINE-US2016GSK014865

PATIENT
  Age: 51 Year
  Sex: Female

DRUGS (22)
  1. LAMOTRIGINE. [Suspect]
     Active Substance: LAMOTRIGINE
     Indication: SEIZURE
     Dosage: 600 MG, UNK
     Route: 048
     Dates: start: 201601
  2. LAMOTRIGINE. [Suspect]
     Active Substance: LAMOTRIGINE
     Dosage: 800 MG, U
     Route: 048
     Dates: start: 20151119
  3. OLANZAPINE. [Suspect]
     Active Substance: OLANZAPINE
     Indication: BIPOLAR DISORDER
     Dosage: 10 MG, QD
     Route: 048
  4. LAMOTRIGINE. [Suspect]
     Active Substance: LAMOTRIGINE
     Dosage: 600 MG, U
     Route: 048
     Dates: start: 201409
  5. LAMOTRIGINE. [Suspect]
     Active Substance: LAMOTRIGINE
     Dosage: 750 MG, U
     Route: 048
     Dates: start: 20151230
  6. DEPAKOTE ER [Suspect]
     Active Substance: DIVALPROEX SODIUM
     Indication: SEIZURE
     Dosage: 500 MG, U
     Route: 048
     Dates: start: 201601
  7. PROGESTERONE. [Concomitant]
     Active Substance: PROGESTERONE
  8. LAMOTRIGINE. [Suspect]
     Active Substance: LAMOTRIGINE
     Dosage: 500 MG, U
     Route: 048
     Dates: start: 20160128
  9. LAMOTRIGINE. [Suspect]
     Active Substance: LAMOTRIGINE
     Dosage: 300 MG, U
     Route: 048
     Dates: start: 20160215
  10. ASPIRIN. [Concomitant]
     Active Substance: ASPIRIN
  11. LAMOTRIGINE. [Suspect]
     Active Substance: LAMOTRIGINE
     Indication: BIPOLAR DISORDER
     Dosage: 800 MG, UNK
  12. GABAPENTIN. [Concomitant]
     Active Substance: GABAPENTIN
  13. LEVOTHYROXINE. [Concomitant]
     Active Substance: LEVOTHYROXINE
  14. VITAMIN D3 [Concomitant]
     Active Substance: CHOLECALCIFEROL
  15. LAMOTRIGINE. [Suspect]
     Active Substance: LAMOTRIGINE
     Indication: AFFECTIVE DISORDER
     Dosage: 300 MG, QD
     Dates: start: 201601
  16. LAMOTRIGINE. [Suspect]
     Active Substance: LAMOTRIGINE
     Dosage: 200 MG, QD
     Dates: start: 201601
  17. LAMOTRIGINE. [Suspect]
     Active Substance: LAMOTRIGINE
     Dosage: 600 MG, U
     Route: 048
     Dates: start: 20160115
  18. LAMOTRIGINE. [Suspect]
     Active Substance: LAMOTRIGINE
     Dosage: 400 MG, U
     Route: 048
     Dates: start: 20160202
  19. IBUPROFEN. [Concomitant]
     Active Substance: IBUPROFEN
  20. PRESERVISION [Concomitant]
     Active Substance: MINERALS\VITAMINS
  21. ZONISAMIDE. [Concomitant]
     Active Substance: ZONISAMIDE
  22. ESTRADIOL. [Concomitant]
     Active Substance: ESTRADIOL

REACTIONS (11)
  - Balance disorder [Recovered/Resolved]
  - Prescribed overdose [Unknown]
  - Overdose [Recovered/Resolved]
  - Gait disturbance [Recovered/Resolved]
  - Drug ineffective [Unknown]
  - Paraesthesia [Unknown]
  - Diplopia [Recovered/Resolved]
  - Fall [Recovered/Resolved]
  - Adverse drug reaction [Unknown]
  - Abasia [Unknown]
  - Drug interaction [Unknown]

NARRATIVE: CASE EVENT DATE: 20160215
